FAERS Safety Report 6466227-2 (Version None)
Quarter: 2009Q4

REPORT INFORMATION
  Report Type: 
  Country: None (occurrence: None)
  Receive Date: 20091202
  Receipt Date: 20091119
  Transmission Date: 20100525
  Serious: Yes (Hospitalization, Other)
  Sender: FDA-Public Use
  Company Number: PHHY2009FR31288

PATIENT
  Sex: Male
  Weight: 86 kg

DRUGS (6)
  1. CGP 57148B T35717+ [Suspect]
     Indication: CHRONIC MYELOID LEUKAEMIA
     Dosage: 400 MG, QD
     Route: 048
     Dates: start: 20030905
  2. XATRAL [Concomitant]
     Indication: PROSTATIC ADENOMA
     Dosage: UNK
     Dates: start: 20020901
  3. DAONIL [Concomitant]
     Indication: TYPE 2 DIABETES MELLITUS
     Dosage: UNK
     Dates: start: 20020901
  4. DIAMICRON [Concomitant]
     Indication: TYPE 2 DIABETES MELLITUS
     Dosage: UNK
     Dates: start: 20020901
  5. FLUDEX LP [Concomitant]
     Indication: HYPERTENSION
     Dosage: UNK
     Dates: start: 20020901
  6. TRIMETAZIDINE [Concomitant]
     Indication: MYOCARDIAL ISCHAEMIA

REACTIONS (8)
  - BENIGN PROSTATIC HYPERPLASIA [None]
  - CHEST PAIN [None]
  - DIVERTICULUM INTESTINAL [None]
  - GASTRIC POLYPS [None]
  - GASTRITIS [None]
  - HYPERTONIC BLADDER [None]
  - OESOPHAGITIS [None]
  - SUPRAVENTRICULAR EXTRASYSTOLES [None]
